FAERS Safety Report 10153083 (Version 1)
Quarter: 2014Q2

REPORT INFORMATION
  Report Type: Report from Study
  Country: FR (occurrence: FR)
  Receive Date: 20140505
  Receipt Date: 20140505
  Transmission Date: 20141212
  Serious: Yes (Hospitalization)
  Sender: FDA-Public Use
  Company Number: FR-BRISTOL-MYERS SQUIBB COMPANY-20684221

PATIENT
  Age: 72 Year
  Sex: Female

DRUGS (7)
  1. PACLITAXEL [Suspect]
     Indication: NEOPLASM MALIGNANT
     Dosage: 80MG/M2 ON DAY1 AND DAY8 EVERY 2 WEEKS.LAST DOSE ON 11APR14
     Route: 042
     Dates: start: 20140224
  2. KARDEGIC [Concomitant]
     Dates: start: 2003
  3. LYRICA [Concomitant]
     Dates: start: 20131202
  4. SOTALEX [Concomitant]
     Dates: start: 2003
  5. TRIATEC [Concomitant]
     Dates: start: 201301
  6. OXYCONTIN [Concomitant]
     Dates: start: 20131202
  7. OXYNORM [Concomitant]
     Dates: start: 20131202

REACTIONS (1)
  - Erysipelas [Recovered/Resolved]
